FAERS Safety Report 9927417 (Version 3)
Quarter: 2014Q2

REPORT INFORMATION
  Report Type: Spontaneous
  Country: US (occurrence: US)
  Receive Date: 20140226
  Receipt Date: 20140430
  Transmission Date: 20141212
  Serious: Yes (Hospitalization, Other)
  Sender: FDA-Public Use
  Company Number: US-JNJFOC-20140210829

PATIENT
  Age: 15 Year
  Sex: Male

DRUGS (2)
  1. IBUPROFEN [Suspect]
     Route: 065
  2. IBUPROFEN [Suspect]
     Indication: MUSCLE STRAIN
     Dosage: THREE TO FOUR TIMES A DAY
     Route: 065

REACTIONS (4)
  - Gastric fistula [Recovered/Resolved]
  - Liver abscess [Recovered/Resolved]
  - Drug abuse [Unknown]
  - Gastric ulcer perforation [Recovered/Resolved]
